FAERS Safety Report 14499206 (Version 1)
Quarter: 2018Q1

REPORT INFORMATION
  Report Type: Spontaneous
  Country: US (occurrence: US)
  Receive Date: 20180207
  Receipt Date: 20180207
  Transmission Date: 20180509
  Serious: No
  Sender: FDA-Public Use
  Company Number: US-JAZZ-2017-US-007683

PATIENT
  Sex: Female

DRUGS (3)
  1. PRIALT [Suspect]
     Active Substance: ZICONOTIDE ACETATE
     Indication: SPINAL PAIN
     Dosage: 0.052 ?G, QH
     Route: 037
  2. HYDROMORPHONE [Suspect]
     Active Substance: HYDROMORPHONE
     Indication: SPINAL PAIN
     Dosage: 0.037 MG, QH
     Route: 037
  3. BUPIVACAINE. [Suspect]
     Active Substance: BUPIVACAINE
     Indication: SPINAL PAIN
     Dosage: 0.65 MG, QH
     Route: 037

REACTIONS (2)
  - Muscular weakness [Unknown]
  - Gait disturbance [Unknown]
